FAERS Safety Report 14540680 (Version 1)
Quarter: 2018Q1

REPORT INFORMATION
  Report Type: Spontaneous
  Country: SE (occurrence: SE)
  Receive Date: 20180216
  Receipt Date: 20180216
  Transmission Date: 20180509
  Serious: Yes (Hospitalization, Other)
  Sender: FDA-Public Use
  Company Number: US-OTSUKA-KJ20050410

PATIENT
  Age: 40 Year
  Sex: Male

DRUGS (9)
  1. ABILIFY [Suspect]
     Active Substance: ARIPIPRAZOLE
     Indication: SCHIZOPHRENIA
  2. ABILIFY [Suspect]
     Active Substance: ARIPIPRAZOLE
     Indication: PSYCHOTIC DISORDER
     Route: 048
     Dates: start: 20050122, end: 20050204
  3. PANODIL [Concomitant]
     Active Substance: ACETAMINOPHEN
     Route: 051
     Dates: start: 20040204
  4. SOBRIL [Concomitant]
     Active Substance: OXAZEPAM
     Indication: INSOMNIA
     Route: 065
     Dates: start: 20050205, end: 20050205
  5. PROPAVAN? [Concomitant]
     Route: 065
  6. LANZO? [Concomitant]
     Route: 065
  7. OXASCAND? [Concomitant]
     Indication: INSOMNIA
     Route: 065
  8. SOMADRIL [Concomitant]
     Route: 065
  9. ABILIFY [Suspect]
     Active Substance: ARIPIPRAZOLE
     Indication: SUBSTANCE-INDUCED PSYCHOTIC DISORDER
     Route: 048
     Dates: start: 20050206, end: 20050206

REACTIONS (4)
  - Insomnia [Recovered/Resolved]
  - Hallucination, auditory [Recovered/Resolved]
  - Neuroleptic malignant syndrome [Recovering/Resolving]
  - Renal failure [Recovering/Resolving]

NARRATIVE: CASE EVENT DATE: 20050205
